FAERS Safety Report 13498710 (Version 1)
Quarter: 2017Q2

REPORT INFORMATION
  Report Type: Spontaneous
  Country: US (occurrence: US)
  Receive Date: 20170501
  Receipt Date: 20170501
  Transmission Date: 20170830
  Serious: No
  Sender: FDA-Public Use
  Company Number: US-BAYER-2017-081989

PATIENT
  Age: 75 Year
  Sex: Female
  Weight: 61 kg

DRUGS (2)
  1. MIRALAX [Suspect]
     Active Substance: POLYETHYLENE GLYCOL 3350
     Dosage: UNK
     Route: 048
     Dates: start: 2014
  2. DULCOLAN [Concomitant]
     Dosage: 3 DF, UNK

REACTIONS (3)
  - Wrong technique in product usage process [None]
  - Off label use [Unknown]
  - Product use in unapproved indication [Unknown]
